FAERS Safety Report 5087845-2 (Version None)
Quarter: 2006Q3

REPORT INFORMATION
  Report Type: 
  Country: None (occurrence: None)
  Receive Date: 20060824
  Receipt Date: 20060815
  Transmission Date: 20061208
  Serious: Yes (Other)
  Sender: FDA-Public Use
  Company Number: US-JNJFOC-20060704237

PATIENT
  Sex: Male
  Weight: 103.87 kg

DRUGS (3)
  1. ULTRAM SR [Suspect]
     Indication: MUSCULOSKELETAL PAIN
     Route: 048
  2. ADVIL [Concomitant]
     Indication: MUSCULOSKELETAL PAIN
  3. TOPROL-XL [Concomitant]
     Indication: HYPERTENSION

REACTIONS (5)
  - ABNORMAL DREAMS [None]
  - BLOOD PRESSURE INCREASED [None]
  - HALLUCINATION [None]
  - HYPERHIDROSIS [None]
  - VISION BLURRED [None]
